FAERS Safety Report 15758591 (Version 1)
Quarter: 2018Q4

REPORT INFORMATION
  Report Type: Spontaneous
  Country: VN (occurrence: VN)
  Receive Date: 20181225
  Receipt Date: 20181225
  Transmission Date: 20190205
  Serious: Yes (Other)
  Sender: FDA-Public Use
  Company Number: PHHY2018VN188220

PATIENT

DRUGS (1)
  1. MYFORTIC [Suspect]
     Active Substance: MYCOPHENOLATE SODIUM
     Indication: TRANSPLANT
     Dosage: UNK
     Route: 065

REACTIONS (3)
  - Circulatory collapse [Unknown]
  - Hypotension [Unknown]
  - Hypersensitivity [Unknown]
